FAERS Safety Report 19853130 (Version 1)
Quarter: 2021Q3

REPORT INFORMATION
  Report Type: Spontaneous
  Country: US (occurrence: US)
  Receive Date: 20210919
  Receipt Date: 20210919
  Transmission Date: 20211014
  Serious: No
  Sender: FDA-Public Use
  Company Number: US-SA-2021SA304152

PATIENT
  Age: 63 Year
  Sex: Female

DRUGS (1)
  1. AUBAGIO [Suspect]
     Active Substance: TERIFLUNOMIDE
     Indication: MULTIPLE SCLEROSIS
     Dosage: 7 MG, QD
     Route: 048
     Dates: start: 20210719, end: 20210908

REACTIONS (6)
  - Hot flush [Unknown]
  - Balance disorder [Unknown]
  - Migraine [Unknown]
  - Anxiety [Unknown]
  - Visual impairment [Unknown]
  - Chest pain [Unknown]
